FAERS Safety Report 13681118 (Version 1)
Quarter: 2017Q2

REPORT INFORMATION
  Report Type: Spontaneous
  Country: US (occurrence: US)
  Receive Date: 20170623
  Receipt Date: 20170623
  Transmission Date: 20170830
  Serious: No
  Sender: FDA-Public Use
  Company Number: US-TEVA-715977ACC

PATIENT
  Sex: Female
  Weight: 70.37 kg

DRUGS (1)
  1. OMEPRAZOLE. [Suspect]
     Active Substance: OMEPRAZOLE
     Dates: start: 2015

REACTIONS (2)
  - Bone loss [Unknown]
  - Feeling abnormal [Unknown]
